FAERS Safety Report 5938656-4 (Version None)
Quarter: 2008Q4

REPORT INFORMATION
  Report Type: 
  Country: None (occurrence: None)
  Receive Date: 20081103
  Receipt Date: 20081021
  Transmission Date: 20090506
  Serious: Yes (Other)
  Sender: FDA-Public Use
  Company Number: FI-ROCHE-593162

PATIENT
  Age: 76 Year
  Sex: Female

DRUGS (5)
  1. XELODA [Suspect]
     Indication: BREAST CANCER
     Dosage: DOSAGE REGIMEN: 2000 MG PER DAY PER 2 WEEKS (1500+500 PER 2 WEEKS + 1 WEEK PAUSE)
     Route: 048
     Dates: start: 20060301, end: 20070501
  2. XELODA [Suspect]
     Dosage: DOSAGE REGIMEN: 1000 MG PER 2 WEEKS + 1 WEEK PAUSE LOWERED DOSAGE.
     Route: 048
     Dates: start: 20070501, end: 20081001
  3. GEMCITABINE [Concomitant]
     Indication: BREAST CANCER
     Dates: start: 20060301, end: 20060501
  4. BONDRONAT [Concomitant]
     Indication: BREAST CANCER
  5. LEVOTHYROXINE SODIUM [Concomitant]
     Dosage: DRUG NAME REPORTED AS: THYROXIN.
     Route: 048

REACTIONS (4)
  - DYSPNOEA [None]
  - LUNG DISORDER [None]
  - PULMONARY TOXICITY [None]
  - SKIN REACTION [None]
